FAERS Safety Report 19856917 (Version 1)
Quarter: 2021Q3

REPORT INFORMATION
  Report Type: Spontaneous
  Country: DE (occurrence: DE)
  Receive Date: 20210920
  Receipt Date: 20210920
  Transmission Date: 20211014
  Serious: Yes (Other)
  Sender: FDA-Public Use
  Company Number: NVSC2021DE208332

PATIENT
  Age: 1 Day
  Sex: Male
  Weight: 2.51 kg

DRUGS (3)
  1. PREDNISOLON SANDOZ [Suspect]
     Active Substance: PREDNISOLONE
     Indication: RHEUMATOID ARTHRITIS
     Dosage: 15 [MG/D (BIS 5 MG/D) ]/ DOSE REDUCTION TO 5 MG AT GW 15.
     Route: 064
  2. SULFASALAZIN HEXAL 500 MG MAGENSAFTRESISTENTE FILMTABLETTEN [Suspect]
     Active Substance: SULFASALAZINE
     Indication: RHEUMATOID ARTHRITIS
     Dosage: 2000 [MG/D (4X500 MG) ]
     Route: 064
     Dates: start: 20191222, end: 20200925
  3. CIMZIA [Concomitant]
     Active Substance: CERTOLIZUMAB PEGOL
     Indication: RHEUMATOID ARTHRITIS
     Dosage: 200 [MG/D (LAUT FACHINFO ALLE 2 WK) ]
     Route: 064

REACTIONS (2)
  - Foetal exposure during pregnancy [Unknown]
  - Small for dates baby [Unknown]

NARRATIVE: CASE EVENT DATE: 20200925
